FAERS Safety Report 7191407-0 (Version None)
Quarter: 2010Q4

REPORT INFORMATION
  Report Type: 
  Country: None (occurrence: None)
  Receive Date: 20101221
  Receipt Date: 20101221
  Transmission Date: 20110411
  Serious: Yes (Other)
  Sender: FDA-Public Use
  Company Number: None

PATIENT
  Age: 59 Year
  Sex: Female
  Weight: 68.0396 kg

DRUGS (2)
  1. ACIPHEX [Suspect]
     Indication: GASTROOESOPHAGEAL REFLUX DISEASE
     Dosage: 20M QAM PO
     Route: 048
     Dates: start: 20100903, end: 20100910
  2. NEXIUM [Suspect]
     Indication: GASTROOESOPHAGEAL REFLUX DISEASE
     Dosage: 40MG QAM PO
     Route: 048
     Dates: start: 20101202, end: 20101205

REACTIONS (3)
  - DIARRHOEA [None]
  - PRODUCT SUBSTITUTION ISSUE [None]
  - VISION BLURRED [None]
